FAERS Safety Report 5357682-X (Version None)
Quarter: 2007Q2

REPORT INFORMATION
  Report Type: 
  Country: None (occurrence: None)
  Receive Date: 20070614
  Receipt Date: 20070607
  Transmission Date: 20071010
  Serious: Yes (Death)
  Sender: FDA-Public Use
  Company Number: FR-PFIZER INC-2007046949

PATIENT
  Age: 74 Year
  Sex: Male

DRUGS (5)
  1. SOLU-MEDROL [Suspect]
     Route: 042
     Dates: start: 20070301, end: 20070329
  2. CIPROFLOXACIN [Interacting]
     Indication: INFECTION
     Route: 048
     Dates: start: 20070301, end: 20070329
  3. FLUINDIONE [Interacting]
     Route: 048
  4. FUROSEMIDE [Interacting]
     Indication: ESSENTIAL HYPERTENSION
     Route: 048
  5. CEFTRIAXONE [Interacting]
     Indication: INFECTION
     Route: 042
     Dates: start: 20070301, end: 20070329

REACTIONS (2)
  - CEREBRAL HAEMORRHAGE [None]
  - DRUG INTERACTION [None]
